FAERS Safety Report 11524728 (Version 1)
Quarter: 2015Q3

REPORT INFORMATION
  Report Type: Spontaneous
  Country: US (occurrence: US)
  Receive Date: 20150918
  Receipt Date: 20150918
  Transmission Date: 20151125
  Serious: No
  Sender: FDA-Public Use
  Company Number: US-ROCHE-745363

PATIENT
  Age: 48 Year
  Sex: Female

DRUGS (2)
  1. PEGASYS [Suspect]
     Active Substance: PEGINTERFERON ALFA-2A
     Indication: HEPATITIS C
     Dosage: FORM:PRE FILLED SYRINGE; DISC ON 12 DEC 2010
     Route: 058
  2. RIBASPHERE [Suspect]
     Active Substance: RIBAVIRIN
     Indication: HEPATITIS C
     Dosage: DIVIDED DOSE; DISC ON 13 DEC 10
     Route: 048

REACTIONS (8)
  - Hypoaesthesia [Recovered/Resolved]
  - Rash generalised [Not Recovered/Not Resolved]
  - Nasal dryness [Unknown]
  - Dry throat [Unknown]
  - Glossodynia [Recovering/Resolving]
  - Tongue discolouration [Unknown]
  - Back pain [Unknown]
  - Glossodynia [Unknown]

NARRATIVE: CASE EVENT DATE: 20101025
